FAERS Safety Report 6865741-5 (Version None)
Quarter: 2010Q3

REPORT INFORMATION
  Report Type: 
  Country: None (occurrence: None)
  Receive Date: 20100721
  Receipt Date: 20080530
  Transmission Date: 20110219
  Serious: Yes (Hospitalization, Other)
  Sender: FDA-Public Use
  Company Number: US-PFIZER INC-2008037967

PATIENT
  Sex: Female
  Weight: 68 kg

DRUGS (6)
  1. CHANTIX [Suspect]
     Indication: TOBACCO ABUSE
     Dates: start: 20080201, end: 20080402
  2. CHANTIX [Suspect]
  3. SYNTHROID [Concomitant]
  4. OMEPRAZOLE [Concomitant]
  5. AMBIEN [Concomitant]
  6. LEXAPRO [Concomitant]

REACTIONS (5)
  - ADJUSTMENT DISORDER WITH DEPRESSED MOOD [None]
  - DEPRESSION [None]
  - INSOMNIA [None]
  - SUICIDAL IDEATION [None]
  - TOBACCO USER [None]
